FAERS Safety Report 9043263 (Version 1)
Quarter: 2013Q1

REPORT INFORMATION
  Report Type: Report from Study
  Country: US (occurrence: US)
  Receive Date: 20130129
  Receipt Date: 20130129
  Transmission Date: 20140127
  Serious: No
  Sender: FDA-Public Use
  Company Number: US-ABBOTT-12P-163-0914427-00

PATIENT
  Sex: Female
  Weight: 58.57 kg

DRUGS (6)
  1. HUMIRA 40 MG/0.8 ML PEN [Suspect]
     Indication: RHEUMATOID ARTHRITIS
     Route: 058
     Dates: start: 201202
  2. BIOTIN [Concomitant]
     Indication: ALOPECIA
  3. ATENOLOL [Concomitant]
     Indication: HYPERTENSION
  4. LISINOPRIL [Concomitant]
     Indication: HYPERTENSION
  5. CALCIUM [Concomitant]
     Indication: MINERAL SUPPLEMENTATION
  6. BIOVAXIN [Concomitant]
     Indication: HEPATIC CIRRHOSIS

REACTIONS (1)
  - Chills [Not Recovered/Not Resolved]
